FAERS Safety Report 7730290-9 (Version None)
Quarter: 2011Q3

REPORT INFORMATION
  Report Type: 
  Country: None (occurrence: None)
  Receive Date: 20110906
  Receipt Date: 20110823
  Transmission Date: 20111222
  Serious: Yes (Other)
  Sender: FDA-Public Use
  Company Number: US-ELI_LILLY_AND_COMPANY-US201003003085

PATIENT
  Sex: Female

DRUGS (3)
  1. FORTEO [Suspect]
     Dosage: 20 UG, QD
     Route: 065
  2. FORTEO [Suspect]
     Indication: OSTEOPOROSIS
     Dosage: 20 UG, DAILY (1/D)
     Route: 065
     Dates: start: 20100305
  3. FORTEO [Suspect]
     Dosage: 20 UG, QD
     Route: 065

REACTIONS (12)
  - HEADACHE [None]
  - INJECTION SITE SWELLING [None]
  - GLAUCOMA [None]
  - INJECTION SITE PAIN [None]
  - MUSCLE SPASMS [None]
  - MALAISE [None]
  - PAIN [None]
  - FATIGUE [None]
  - PAIN IN EXTREMITY [None]
  - INJECTION SITE HAEMORRHAGE [None]
  - SURGERY [None]
  - INJECTION SITE HAEMATOMA [None]
